FAERS Safety Report 17673522 (Version 2)
Quarter: 2020Q2

REPORT INFORMATION
  Report Type: Spontaneous
  Country: DE (occurrence: DE)
  Receive Date: 20200416
  Receipt Date: 20200504
  Transmission Date: 20200713
  Serious: Yes (Congenital Anomaly, Other)
  Sender: FDA-Public Use
  Company Number: DE-AUROBINDO-AUR-APL-2020-018423

PATIENT
  Age: 1 Day
  Sex: Male
  Weight: 4.08 kg

DRUGS (8)
  1. BETAMETHASONE. [Concomitant]
     Active Substance: BETAMETHASONE
     Indication: MATERNAL THERAPY TO ENHANCE FOETAL LUNG MATURITY
     Dosage: UNK,PROBABLY PERIPARTAL
     Route: 064
  2. VALPROAT [Concomitant]
     Active Substance: VALPROATE SODIUM
     Indication: EPILEPSY
     Dosage: 1500 MILLIGRAM, ONCE A DAY  (500-0-1000) ]
     Route: 065
     Dates: start: 20180706
  3. BISOPROLOL [Suspect]
     Active Substance: BISOPROLOL
     Indication: SINUS TACHYCARDIA
     Dosage: 10 MILLIGRAM, ONCE A DAY
     Route: 064
     Dates: start: 20180706
  4. FOLSAURE SANAVITA [Concomitant]
     Indication: PROPHYLAXIS OF NEURAL TUBE DEFECT
     Dosage: 0.8 MILLIGRAM, DAILY
     Route: 064
     Dates: start: 20180706
  5. METOPROLOL. [Suspect]
     Active Substance: METOPROLOL
     Indication: SINUS TACHYCARDIA
     Dosage: 23.75 MILLIGRAM, ONCE A DAY
     Route: 064
     Dates: start: 20180830
  6. PROCORALAN [Suspect]
     Active Substance: IVABRADINE
     Indication: SINUS TACHYCARDIA
     Dosage: 7.5 MILLIGRAM, TWO TIMES A DAY(2 SEPARATED DOSES)
     Route: 064
     Dates: start: 20180706
  7. LEVOCETIRIZINE [Concomitant]
     Active Substance: LEVOCETIRIZINE
     Indication: SEASONAL ALLERGY
     Dosage: UNK,5 [MG/D ]/ ONLY TWO TO THREE TIMES DURING THE ENTIRE PREGNANCY
     Route: 064
     Dates: start: 20180706
  8. L-THYROXIN [Concomitant]
     Active Substance: LEVOTHYROXINE SODIUM
     Indication: HYPOTHYROIDISM
     Dosage: 50 MILLIGRAM, ONCE A DAY
     Route: 064
     Dates: start: 20180706, end: 20190308

REACTIONS (6)
  - Congenital choroid plexus cyst [Unknown]
  - Atrial septal defect [Recovered/Resolved]
  - Respiratory disorder neonatal [Recovered/Resolved]
  - Foetal exposure during pregnancy [Recovered/Resolved with Sequelae]
  - Cleft palate [Not Recovered/Not Resolved]
  - Large for dates baby [Unknown]

NARRATIVE: CASE EVENT DATE: 2018
